FAERS Safety Report 19039008 (Version 1)
Quarter: 2021Q1

REPORT INFORMATION
  Report Type: Spontaneous
  Country: CH (occurrence: CH)
  Receive Date: 20210322
  Receipt Date: 20210322
  Transmission Date: 20210420
  Serious: Yes (Other)
  Sender: FDA-Public Use
  Company Number: CH-GLAXOSMITHKLINE-CH2021064036

PATIENT
  Age: 64 Year
  Sex: Female

DRUGS (1)
  1. VENTOLIN [Suspect]
     Active Substance: ALBUTEROL SULFATE
     Indication: PRODUCT USED FOR UNKNOWN INDICATION
     Dosage: UNK
     Route: 055

REACTIONS (4)
  - Suicidal ideation [Unknown]
  - Mucosal inflammation [Unknown]
  - Fungal infection [Unknown]
  - Burning sensation [Unknown]

NARRATIVE: CASE EVENT DATE: 2018
